FAERS Safety Report 12712791 (Version 1)
Quarter: 2016Q3

REPORT INFORMATION
  Report Type: Report from Study
  Country: US (occurrence: US)
  Receive Date: 20160902
  Receipt Date: 20160902
  Transmission Date: 20161109
  Serious: Yes (Death, Other)
  Sender: FDA-Public Use
  Company Number: US-REGENERON PHARMACEUTICALS, INC.-2016-21123

PATIENT

DRUGS (3)
  1. EYLEA [Suspect]
     Active Substance: AFLIBERCEPT
     Indication: DIABETIC RETINOPATHY
  2. EYLEA [Suspect]
     Active Substance: AFLIBERCEPT
     Indication: MACULAR OEDEMA
  3. EYLEA [Suspect]
     Active Substance: AFLIBERCEPT
     Indication: TYPE 2 DIABETES MELLITUS
     Dosage: UNK, SINGLE DOSE
     Dates: start: 20150423, end: 20150423

REACTIONS (1)
  - Death [Fatal]

NARRATIVE: CASE EVENT DATE: 2015
